FAERS Safety Report 7356393-9 (Version None)
Quarter: 2011Q1

REPORT INFORMATION
  Report Type: 
  Country: None (occurrence: None)
  Receive Date: 20110316
  Receipt Date: 20110309
  Transmission Date: 20110831
  Serious: Yes (Hospitalization, Other)
  Sender: FDA-Public Use
  Company Number: US-ELI_LILLY_AND_COMPANY-US201103003224

PATIENT
  Sex: Female

DRUGS (4)
  1. HUMULIN N [Suspect]
     Indication: DIABETES MELLITUS
     Dosage: 30 U, DAILY (1/D)
  2. CARVEDILOL [Concomitant]
     Dosage: 6.25 D/F, 2/D
  3. METOPROLOL SUCCINATE [Concomitant]
     Dosage: 50 MG, 2/D
  4. HUMULIN N [Suspect]
     Dosage: 30 U, DAILY (1/D)

REACTIONS (15)
  - SINUS CANCER METASTATIC [None]
  - BLOOD GLUCOSE INCREASED [None]
  - HYPERHIDROSIS [None]
  - DRUG INEFFECTIVE [None]
  - NAUSEA [None]
  - HYPERTENSION [None]
  - CARDIAC FAILURE CONGESTIVE [None]
  - AGEUSIA [None]
  - DECREASED APPETITE [None]
  - PALPITATIONS [None]
  - BLOOD GLUCOSE DECREASED [None]
  - DIZZINESS [None]
  - MYOCARDIAL INFARCTION [None]
  - SALIVARY GLAND ATROPHY [None]
  - MALAISE [None]
